FAERS Safety Report 13524243 (Version 2)
Quarter: 2017Q2

REPORT INFORMATION
  Report Type: Spontaneous
  Country: US (occurrence: US)
  Receive Date: 20170508
  Receipt Date: 20170510
  Transmission Date: 20170830
  Serious: No
  Sender: FDA-Public Use
  Company Number: PHEH2017US013615

PATIENT
  Sex: Male

DRUGS (1)
  1. PROMACTA [Suspect]
     Active Substance: ELTROMBOPAG OLAMINE
     Indication: VIRAL HEPATITIS CARRIER
     Dosage: 25 MG, QD
     Route: 048
     Dates: start: 20170303

REACTIONS (2)
  - Alopecia [Unknown]
  - Concomitant disease aggravated [Unknown]
